FAERS Safety Report 14409555 (Version 2)
Quarter: 2018Q1

REPORT INFORMATION
  Report Type: Spontaneous
  Country: DE (occurrence: DE)
  Receive Date: 20180119
  Receipt Date: 20180214
  Transmission Date: 20180509
  Serious: Yes (Hospitalization, Other)
  Sender: FDA-Public Use
  Company Number: DE-SUN PHARMACEUTICAL INDUSTRIES LTD-2018R1-160170

PATIENT
  Age: 78 Year
  Sex: Female

DRUGS (35)
  1. METAMIZOL [Suspect]
     Active Substance: METAMIZOLE SODIUM
     Dosage: 500 MG, QD
     Route: 048
     Dates: start: 20140522, end: 20140522
  2. PIPAMPERON [Suspect]
     Active Substance: PIPAMPERONE HYDROCHLORIDE
     Dosage: 60 MG, DAILY
     Route: 048
     Dates: start: 20140515, end: 20140524
  3. PIPAMPERON [Suspect]
     Active Substance: PIPAMPERONE HYDROCHLORIDE
     Dosage: 20 MG, DAILY
     Route: 048
     Dates: start: 20140508, end: 20140509
  4. LISINOPRIL. [Suspect]
     Active Substance: LISINOPRIL
     Dosage: 2.5 MG, UNK
     Route: 048
     Dates: start: 20140524
  5. FOLASAEURE [Concomitant]
     Indication: PRODUCT USED FOR UNKNOWN INDICATION
     Dosage: DAILY DOSE: 5 MG MILLIGRAM(S) EVERY DAY
     Route: 048
     Dates: start: 20140502
  6. SIMVASTATIN. [Concomitant]
     Active Substance: SIMVASTATIN
     Indication: PRODUCT USED FOR UNKNOWN INDICATION
     Dosage: DAILY DOSE: 10 MG MILLIGRAM(S) EVERY DAY
     Route: 048
     Dates: start: 20140201
  7. MACROGOL [Concomitant]
     Active Substance: POLYETHYLENE GLYCOLS
     Indication: PRODUCT USED FOR UNKNOWN INDICATION
     Dosage: DAILY DOSE: 1 DF DOSAGE FORM EVERY DAY
     Route: 048
     Dates: start: 2011
  8. VENLAFAXIN [Concomitant]
     Active Substance: VENLAFAXINE HYDROCHLORIDE
     Indication: PRODUCT USED FOR UNKNOWN INDICATION
     Dosage: 30 MG, UNK
     Route: 048
     Dates: start: 2012
  9. RESONIUM [Concomitant]
     Active Substance: SODIUM POLYSTYRENE SULFONATE
     Indication: PRODUCT USED FOR UNKNOWN INDICATION
     Dosage: DOSAGE FORM: UNSPECIFIED, 2 TABLE SPOON ()
     Route: 048
     Dates: start: 20140528
  10. PIPAMPERON [Suspect]
     Active Substance: PIPAMPERONE HYDROCHLORIDE
     Dosage: 80 MG, DAILY
     Route: 048
     Dates: start: 20140525, end: 20140526
  11. FORMOTEROL [Concomitant]
     Active Substance: FORMOTEROL
     Indication: PRODUCT USED FOR UNKNOWN INDICATION
     Dosage: DAILY DOSE: 1 DF DOSAGE FORM EVERY DAY
     Route: 065
     Dates: start: 201312
  12. PANTOPRAZOL [Concomitant]
     Active Substance: PANTOPRAZOLE SODIUM
     Indication: PRODUCT USED FOR UNKNOWN INDICATION
     Dosage: DAILY DOSE: 40 MG MILLIGRAM(S) EVERY DAY
     Route: 048
  13. PIPAMPERON [Suspect]
     Active Substance: PIPAMPERONE HYDROCHLORIDE
     Dosage: 40 MG, DAILY
     Route: 048
     Dates: start: 20140510, end: 20140513
  14. STILNOX [Suspect]
     Active Substance: ZOLPIDEM TARTRATE
     Indication: PRODUCT USED FOR UNKNOWN INDICATION
     Dosage: DOSAGE FORM: UNSPECIFIED
     Route: 048
     Dates: start: 20140527
  15. METAMIZOL [Suspect]
     Active Substance: METAMIZOLE SODIUM
     Dosage: 1000 MG, QD
     Route: 048
     Dates: start: 20140523, end: 20140525
  16. METAMIZOL [Suspect]
     Active Substance: METAMIZOLE SODIUM
     Dosage: DOSAGE FORM: UNSPECIFIED, 500-1000 MG
     Route: 048
     Dates: start: 20140517, end: 20140517
  17. MIRTAZAPIN [Suspect]
     Active Substance: MIRTAZAPINE
     Indication: PRODUCT USED FOR UNKNOWN INDICATION
     Dosage: UNK
     Route: 048
  18. METAMIZOL [Suspect]
     Active Substance: METAMIZOLE SODIUM
     Indication: PRODUCT USED FOR UNKNOWN INDICATION
     Dosage: DAILY DOSE: 2000 MG MILLIGRAM(S) EVERY DAY
     Route: 048
     Dates: start: 20140518, end: 20140519
  19. METAMIZOL [Suspect]
     Active Substance: METAMIZOLE SODIUM
     Dosage: DOSAGE FORM: UNSPECIFIED, 500-1000 MG
     Route: 048
     Dates: start: 20140502, end: 20140516
  20. DUROGESIC [Suspect]
     Active Substance: FENTANYL
     Indication: PRODUCT USED FOR UNKNOWN INDICATION
     Dosage: DAILY DOSE: 75 ?G MICROGRAM(S) EVERY 3 DAY
     Route: 062
     Dates: start: 2012
  21. AMLODIPIN [Concomitant]
     Active Substance: AMLODIPINE BESYLATE
     Indication: PRODUCT USED FOR UNKNOWN INDICATION
     Dosage: DAILY DOSE: 10 MG MILLIGRAM(S) EVERY DAY
     Route: 048
     Dates: start: 2011
  22. PIPAMPERON [Suspect]
     Active Substance: PIPAMPERONE HYDROCHLORIDE
     Indication: PRODUCT USED FOR UNKNOWN INDICATION
     Dosage: 20 MG, DAILY
     Route: 048
     Dates: start: 20140528, end: 20140528
  23. ABILIFY [Suspect]
     Active Substance: ARIPIPRAZOLE
     Indication: PRODUCT USED FOR UNKNOWN INDICATION
     Dosage: 2.5 MG, UNK
     Route: 048
     Dates: start: 20140508, end: 20140514
  24. ABILIFY [Suspect]
     Active Substance: ARIPIPRAZOLE
     Dosage: 5 MG, UNK
     Route: 048
     Dates: start: 20140515, end: 20140520
  25. METAMIZOL [Suspect]
     Active Substance: METAMIZOLE SODIUM
     Dosage: 500 MG, QD
     Route: 048
     Dates: start: 20140526, end: 20140528
  26. INSULIN [Concomitant]
     Active Substance: INSULIN NOS
     Indication: PRODUCT USED FOR UNKNOWN INDICATION
     Dosage: DAILY DOSE: 60 IU INTERNATIONAL UNIT(S) EVERY DAY
     Route: 058
  27. PIPAMPERON [Suspect]
     Active Substance: PIPAMPERONE HYDROCHLORIDE
     Dosage: 120 MG, DAILY
     Route: 048
     Dates: start: 20140527, end: 20140527
  28. LISINOPRIL. [Suspect]
     Active Substance: LISINOPRIL
     Indication: PRODUCT USED FOR UNKNOWN INDICATION
     Dosage: 5 MG, UNK
     Route: 048
     Dates: start: 20140520
  29. DIAZEPAM. [Suspect]
     Active Substance: DIAZEPAM
     Indication: RESTLESSNESS
     Dosage: DOSAGE FORM: UNSPECIFIED, IN NIGHTS 26/27-MAY-2014 AND 27/28-MAY-2014 IN TOTAL 30 MG IN 26 HOURS
     Route: 030
  30. DIAZEPAM. [Suspect]
     Active Substance: DIAZEPAM
     Dosage: DOSAGE FORM: UNSPECIFIED, SINCE YEARS
     Route: 048
     Dates: start: 20140526, end: 20140528
  31. METAMIZOL [Suspect]
     Active Substance: METAMIZOLE SODIUM
     Dosage: 1000 MG, QD
     Route: 048
     Dates: start: 20140520, end: 20140521
  32. METAMIZOL [Suspect]
     Active Substance: METAMIZOLE SODIUM
     Indication: PRODUCT USED FOR UNKNOWN INDICATION
     Dosage: 500 MG, QD
     Route: 048
     Dates: start: 20140530
  33. OPHTALMIN N [Concomitant]
     Indication: PRODUCT USED FOR UNKNOWN INDICATION
     Dosage: UNK 2X1 SINCE WEEKS
     Route: 065
  34. PREDNISOLON [Concomitant]
     Active Substance: PREDNISOLONE
     Indication: PRODUCT USED FOR UNKNOWN INDICATION
     Dosage: DOSAGE FORM: UNSPECIFIED
     Route: 048
     Dates: start: 20140528
  35. CLOPIDOGREL [Concomitant]
     Active Substance: CLOPIDOGREL BISULFATE
     Indication: PRODUCT USED FOR UNKNOWN INDICATION
     Dosage: DAILY DOSE: 75 MG MILLIGRAM(S) EVERY DAY
     Route: 048
     Dates: start: 2011

REACTIONS (14)
  - Syncope [Recovered/Resolved]
  - Loss of consciousness [Recovered/Resolved]
  - Pancytopenia [Recovered/Resolved]
  - Dysarthria [Unknown]
  - Prescribed underdose [Unknown]
  - Hypokalaemia [Unknown]
  - Rash [Unknown]
  - Fall [Unknown]
  - Facial nerve disorder [Unknown]
  - Left ventricular hypertrophy [Unknown]
  - Diarrhoea [Unknown]
  - Drug interaction [Unknown]
  - Restlessness [Unknown]
  - Myoclonus [Unknown]

NARRATIVE: CASE EVENT DATE: 20140519
